FAERS Safety Report 6405639-X (Version None)
Quarter: 2009Q4

REPORT INFORMATION
  Report Type: 
  Country: None (occurrence: None)
  Receive Date: 20091019
  Receipt Date: 20091012
  Transmission Date: 20100525
  Serious: Yes (Other)
  Sender: FDA-Public Use
  Company Number: A0812222A

PATIENT
  Age: 33 Year
  Sex: Male
  Weight: 83.6 kg

DRUGS (3)
  1. RANITIDINE [Suspect]
     Route: 065
     Dates: start: 20090101
  2. CHANTIX [Suspect]
     Indication: TOBACCO USER
     Dosage: .5MG PER DAY
     Route: 048
     Dates: start: 20070101, end: 20081101
  3. ALLEGRA [Suspect]
     Route: 048
     Dates: start: 20090101

REACTIONS (9)
  - ABDOMINAL PAIN UPPER [None]
  - ADVERSE DRUG REACTION [None]
  - ANTIBODY TEST POSITIVE [None]
  - DRUG INEFFECTIVE [None]
  - DYSPHAGIA [None]
  - EYE SWELLING [None]
  - LIP SWELLING [None]
  - SWELLING FACE [None]
  - URTICARIA [None]
